FAERS Safety Report 9537530 (Version 2)
Quarter: 2016Q1

REPORT INFORMATION
  Report Type: Spontaneous
  Country: CA (occurrence: CA)
  Receive Date: 20130919
  Receipt Date: 20160113
  Transmission Date: 20160526
  Serious: Yes (Disabling, Other)
  Sender: FDA-Public Use
  Company Number: CA-009507513-1309CAN008933

PATIENT
  Age: 29 Year
  Sex: Female
  Weight: 65.76 kg

DRUGS (2)
  1. NUVARING [Suspect]
     Active Substance: ETHINYL ESTRADIOL\ETONOGESTREL
     Indication: CONTRACEPTION
     Dosage: 1 DF, Q3W
     Route: 067
     Dates: start: 2009, end: 201207
  2. RATIO AMCINONIDE [Concomitant]
     Indication: ECZEMA
     Route: 065

REACTIONS (6)
  - Skin plaque [Recovered/Resolved]
  - Major depression [Recovered/Resolved]
  - Acne [Recovered/Resolved]
  - Libido decreased [Recovered/Resolved]
  - Alopecia [Recovered/Resolved]
  - Breast pain [Recovered/Resolved]

NARRATIVE: CASE EVENT DATE: 2009
